FAERS Safety Report 7775037-5 (Version None)
Quarter: 2011Q3

REPORT INFORMATION
  Report Type: 
  Country: None (occurrence: None)
  Receive Date: 20110923
  Receipt Date: 20110912
  Transmission Date: 20111222
  Serious: No
  Sender: FDA-Public Use
  Company Number: US-ELI_LILLY_AND_COMPANY-US201109003378

PATIENT
  Age: 78 Year
  Sex: Male

DRUGS (3)
  1. CYMBALTA [Suspect]
     Dosage: 120 MG, UNK
  2. RISPERDAL [Concomitant]
  3. CYMBALTA [Suspect]
     Dosage: 60 MG, UNK

REACTIONS (1)
  - HEPATIC ENZYME INCREASED [None]
